FAERS Safety Report 9867649 (Version 1)
Quarter: 2014Q1

REPORT INFORMATION
  Report Type: Spontaneous
  Country: US (occurrence: None)
  Receive Date: 20140203
  Receipt Date: 20140203
  Transmission Date: 20141002
  Serious: Yes (Hospitalization, Other)
  Sender: FDA-Public Use
  Company Number: None

PATIENT
  Age: 43 Year
  Sex: Female
  Weight: 68.49 kg

DRUGS (1)
  1. FEMARA [Suspect]
     Indication: BREAST CANCER
     Dosage: STOPPED 1-28-13?STARTED AGAIN 1-1-14 114
     Route: 048
     Dates: start: 20121101, end: 20131121

REACTIONS (9)
  - Fibrin D dimer increased [None]
  - Blood pressure increased [None]
  - Blood cholesterol increased [None]
  - Pain in extremity [None]
  - Pain in extremity [None]
  - Groin pain [None]
  - Electrocardiogram abnormal [None]
  - Fear [None]
  - Amnesia [None]
